FAERS Safety Report 9702102 (Version 1)
Quarter: 2013Q4

REPORT INFORMATION
  Report Type: Spontaneous
  Country: US (occurrence: None)
  Receive Date: 20131120
  Receipt Date: 20131120
  Transmission Date: 20140711
  Serious: Yes (Hospitalization)
  Sender: FDA-Public Use
  Company Number: None

PATIENT
  Age: 77 None
  Sex: Female

DRUGS (7)
  1. ALENDRONATE SODIUM TABLETS USP [Suspect]
     Indication: OSTEOPENIA
     Dosage: 70 MG  1 TABLET 1 EVERY WEEK BY MOUTH
     Route: 048
  2. GAXIL [Concomitant]
  3. AMBIEN [Concomitant]
  4. FISH OIL [Concomitant]
  5. ASPIRIN [Concomitant]
  6. CALCIUM [Concomitant]
  7. MULTI VITAMIN [Concomitant]

REACTIONS (3)
  - Fall [None]
  - Femur fracture [None]
  - Anaemia [None]
